FAERS Safety Report 14160221 (Version 3)
Quarter: 2017Q4

REPORT INFORMATION
  Report Type: Spontaneous
  Country: US (occurrence: US)
  Receive Date: 20171106
  Receipt Date: 20171123
  Transmission Date: 20180321
  Serious: Yes (Other)
  Sender: FDA-Public Use
  Company Number: US-009507513-1711USA000605

PATIENT
  Age: 42 Year
  Sex: Female

DRUGS (7)
  1. LENALIDOMIDE [Interacting]
     Active Substance: LENALIDOMIDE
     Dosage: DOSE-ATTENUATED
     Route: 048
  2. ASPIRIN. [Concomitant]
     Active Substance: ASPIRIN
     Indication: PROPHYLAXIS
     Dosage: UNK
     Route: 048
  3. LENALIDOMIDE [Interacting]
     Active Substance: LENALIDOMIDE
     Indication: NEUROPATHY PERIPHERAL
     Dosage: 25 MG/DAY
     Route: 048
  4. DEXAMETHASONE SODIUM PHOSPHATE. [Interacting]
     Active Substance: DEXAMETHASONE SODIUM PHOSPHATE
     Dosage: TAPERED DOSE/LOW DOSE
     Route: 042
  5. CARFILZOMIB [Interacting]
     Active Substance: CARFILZOMIB
     Indication: NEUROPATHY PERIPHERAL
     Dosage: 20 MG/M2, QD
     Route: 042
  6. DEXAMETHASONE SODIUM PHOSPHATE. [Suspect]
     Active Substance: DEXAMETHASONE SODIUM PHOSPHATE
     Indication: NEUROPATHY PERIPHERAL
     Dosage: 20 MG, UNK (2 DOSES)
     Route: 042
  7. DEXAMETHASONE SODIUM PHOSPHATE. [Interacting]
     Active Substance: DEXAMETHASONE SODIUM PHOSPHATE
     Dosage: 20 MG, INTERMITTENT
     Route: 042

REACTIONS (5)
  - Drug interaction [Unknown]
  - Myocardial fibrosis [Not Recovered/Not Resolved]
  - Cardiotoxicity [Recovered/Resolved]
  - Cardiotoxicity [Recovered/Resolved with Sequelae]
  - Ventricular tachycardia [Recovered/Resolved]
